FAERS Safety Report 11927618 (Version 2)
Quarter: 2016Q1

REPORT INFORMATION
  Report Type: Spontaneous
  Country: US (occurrence: US)
  Receive Date: 20160119
  Receipt Date: 20160303
  Transmission Date: 20160526
  Serious: Yes (Other)
  Sender: FDA-Public Use
  Company Number: US-PFIZER INC-2015408023

PATIENT
  Age: 55 Year
  Sex: Female
  Weight: 126 kg

DRUGS (1)
  1. PRISTIQ EXTENDED RELEASE [Suspect]
     Active Substance: DESVENLAFAXINE SUCCINATE
     Indication: DEPRESSION
     Dosage: 150 MG, 1X/DAY, (THREE 50MG)
     Route: 048

REACTIONS (2)
  - Condition aggravated [Unknown]
  - Weight increased [Unknown]
